FAERS Safety Report 5693171-0 (Version None)
Quarter: 2008Q2

REPORT INFORMATION
  Report Type: 
  Country: None (occurrence: None)
  Receive Date: 20080403
  Receipt Date: 20080328
  Transmission Date: 20081010
  Serious: Yes (Death)
  Sender: FDA-Public Use
  Company Number: US-BAYER-200818404NA

PATIENT
  Sex: Male

DRUGS (1)
  1. TRASYLOL [Suspect]
     Indication: CARDIAC OPERATION
     Dates: start: 20060321

REACTIONS (8)
  - ANHEDONIA [None]
  - ANXIETY [None]
  - DISABILITY [None]
  - INJURY [None]
  - LIFE EXPECTANCY SHORTENED [None]
  - PAIN [None]
  - RENAL FAILURE [None]
  - SCAR [None]
